FAERS Safety Report 13250864 (Version 1)
Quarter: 2017Q1

REPORT INFORMATION
  Report Type: Spontaneous
  Country: US (occurrence: US)
  Receive Date: 20170220
  Receipt Date: 20170220
  Transmission Date: 20170428
  Serious: No
  Sender: FDA-Public Use
  Company Number: US-TEVA-645194USA

PATIENT
  Sex: Male

DRUGS (6)
  1. ANTIVERT [Concomitant]
     Active Substance: MECLIZINE HYDROCHLORIDE
  2. LYRICA [Concomitant]
     Active Substance: PREGABALIN
  3. AMOXICILLIN. [Suspect]
     Active Substance: AMOXICILLIN
     Route: 065
  4. CELEBREX [Concomitant]
     Active Substance: CELECOXIB
  5. DILANTIN [Concomitant]
     Active Substance: PHENYTOIN
  6. MEVACOR [Concomitant]
     Active Substance: LOVASTATIN

REACTIONS (1)
  - Drug hypersensitivity [Unknown]
